FAERS Safety Report 15367119 (Version 1)
Quarter: 2018Q3

REPORT INFORMATION
  Report Type: Spontaneous
  Country: US (occurrence: US)
  Receive Date: 20180910
  Receipt Date: 20180910
  Transmission Date: 20181010
  Serious: No
  Sender: FDA-Public Use
  Company Number: US-ALLERGAN-1838697US

PATIENT
  Age: 15 Year
  Sex: Female

DRUGS (1)
  1. CARAFATE [Suspect]
     Active Substance: SUCRALFATE
     Indication: GASTROOESOPHAGEAL REFLUX DISEASE
     Dosage: TWO DOSES (MONDAY NIGHT AND TUESDAY)
     Route: 065

REACTIONS (4)
  - Faeces discoloured [Unknown]
  - Pyrexia [Unknown]
  - Abdominal pain upper [Unknown]
  - Off label use [Unknown]
